FAERS Safety Report 21119730 (Version 1)
Quarter: 2022Q3

REPORT INFORMATION
  Report Type: Spontaneous
  Country: US (occurrence: None)
  Receive Date: 20220721
  Receipt Date: 20220721
  Transmission Date: 20221026
  Serious: No
  Sender: FDA-Public Use
  Company Number: None

PATIENT
  Age: 63 Year
  Sex: Female
  Weight: 72 kg

DRUGS (8)
  1. MAGNESIUM CITRATE LEMON [Suspect]
     Active Substance: MAGNESIUM CITRATE
     Indication: Constipation
     Dates: start: 20220701, end: 20220715
  2. NORCO [Concomitant]
     Active Substance: ACETAMINOPHEN\HYDROCODONE BITARTRATE
  3. CLARITIN [Concomitant]
     Active Substance: LORATADINE
  4. IBU [Concomitant]
     Active Substance: IBUPROFEN
  5. FLONASE [Concomitant]
     Active Substance: FLUTICASONE PROPIONATE
  6. EXCEDRIN [Concomitant]
     Active Substance: ACETAMINOPHEN\ASPIRIN\CAFFEINE
  7. AFRIN [Concomitant]
     Active Substance: OXYMETAZOLINE
  8. VITAMIN C [Concomitant]
     Active Substance: ASCORBIC ACID

REACTIONS (4)
  - Recalled product administered [None]
  - Vomiting [None]
  - Asthenia [None]
  - Malaise [None]
